FAERS Safety Report 22541732 (Version 1)
Quarter: 2023Q2

REPORT INFORMATION
  Report Type: Spontaneous
  Country: US (occurrence: None)
  Receive Date: 20230608
  Receipt Date: 20230608
  Transmission Date: 20230721
  Serious: Yes (Life-Threatening, Hospitalization)
  Sender: FDA-Public Use
  Company Number: None

PATIENT
  Age: 85 Year
  Sex: Male

DRUGS (1)
  1. GADOTERIDOL [Suspect]
     Active Substance: GADOTERIDOL

REACTIONS (10)
  - Deafness [None]
  - Dizziness [None]
  - Asthenia [None]
  - Dyspnoea [None]
  - Hyperhidrosis [None]
  - Unresponsive to stimuli [None]
  - Cardio-respiratory arrest [None]
  - Hallucination [None]
  - Drug hypersensitivity [None]
  - Contrast media reaction [None]

NARRATIVE: CASE EVENT DATE: 20230103
